FAERS Safety Report 16942335 (Version 1)
Quarter: 2019Q4

REPORT INFORMATION
  Report Type: Spontaneous
  Country: US (occurrence: US)
  Receive Date: 20191021
  Receipt Date: 20191021
  Transmission Date: 20200122
  Serious: Yes (Other)
  Sender: FDA-Public Use
  Company Number: US-SA-2018SA001900

PATIENT
  Age: 41 Year
  Sex: Female
  Weight: 66 kg

DRUGS (8)
  1. HERCEPTIN [Concomitant]
     Active Substance: TRASTUZUMAB
     Indication: BREAST CANCER FEMALE
     Dosage: 415 MG, QD
     Route: 042
  2. COMPAZINE [PROCHLORPERAZINE EDISYLATE] [Concomitant]
     Active Substance: PROCHLORPERAZINE EDISYLATE
     Dosage: 10 MG, QD
  3. EMEND [Concomitant]
     Active Substance: APREPITANT
     Dosage: 125 MG, QD
  4. TAXOTERE [Suspect]
     Active Substance: DOCETAXEL
     Indication: BREAST CANCER FEMALE
     Dosage: 135 MG, Q3W
     Route: 042
     Dates: start: 20081215, end: 20081215
  5. TAXOTERE [Suspect]
     Active Substance: DOCETAXEL
     Dosage: 135 MG, Q3W
     Route: 042
     Dates: start: 20090407, end: 20090407
  6. PARAPLATIN [Concomitant]
     Active Substance: CARBOPLATIN
     Indication: BREAST CANCER FEMALE
     Dosage: 650 MG
     Route: 042
  7. ZOFRAN [Concomitant]
     Active Substance: ONDANSETRON HYDROCHLORIDE
  8. HEPARIN PORCINE [Concomitant]

REACTIONS (5)
  - Impaired quality of life [Unknown]
  - Anxiety [Unknown]
  - Pain [Unknown]
  - Alopecia [Recovering/Resolving]
  - Emotional distress [Unknown]

NARRATIVE: CASE EVENT DATE: 20090101
